FAERS Safety Report 24542924 (Version 3)
Quarter: 2024Q4

REPORT INFORMATION
  Report Type: Spontaneous
  Country: DE (occurrence: DE)
  Receive Date: 20241024
  Receipt Date: 20241030
  Transmission Date: 20250115
  Serious: Yes (Other)
  Sender: PFIZER
  Company Number: DE-BRISTOL-MYERS SQUIBB COMPANY-2024-162661

PATIENT
  Age: 74 Year
  Sex: Male

DRUGS (3)
  1. ELIQUIS [Interacting]
     Active Substance: APIXABAN
     Dosage: 5 MG, 2X/DAY
  2. METHOTREXATE SODIUM [Interacting]
     Active Substance: METHOTREXATE SODIUM
     Dosage: 15 MG, WEEKLY
  3. PREDNISOLONE [Concomitant]
     Active Substance: PREDNISOLONE
     Indication: Rheumatic disorder
     Dosage: 10 MG, 1X/DAY

REACTIONS (2)
  - Embolic stroke [Recovered/Resolved with Sequelae]
  - Drug interaction [Unknown]
